FAERS Safety Report 6288958-X (Version None)
Quarter: 2009Q3

REPORT INFORMATION
  Report Type: 
  Country: None (occurrence: None)
  Receive Date: 20090729
  Receipt Date: 20090721
  Transmission Date: 20100115
  Serious: Yes (Life-Threatening, Hospitalization, Disabling, Other)
  Sender: FDA-Public Use
  Company Number: SE-ABBOTT-09P-150-0581658-00

PATIENT
  Sex: Male

DRUGS (1)
  1. PROCREN DEPOT 11.25 MG [Suspect]
     Indication: PROSTATE CANCER
     Route: 058
     Dates: start: 20090101

REACTIONS (13)
  - ARRHYTHMIA [None]
  - BLOOD GLUCOSE INCREASED [None]
  - CHILLS [None]
  - DYSPNOEA [None]
  - FLUSHING [None]
  - GENERAL PHYSICAL HEALTH DETERIORATION [None]
  - HAEMORRHAGE [None]
  - METASTASIS [None]
  - NAUSEA [None]
  - PAIN [None]
  - PALPITATIONS [None]
  - PULMONARY EMBOLISM [None]
  - VOMITING [None]
